FAERS Safety Report 14255071 (Version 1)
Quarter: 2017Q4

REPORT INFORMATION
  Report Type: Spontaneous
  Country: US (occurrence: US)
  Receive Date: 20171206
  Receipt Date: 20171206
  Transmission Date: 20180321
  Serious: Yes (Other)
  Sender: FDA-Public Use
  Company Number: US-ROCHE-2032985

PATIENT
  Age: 47 Year
  Sex: Female
  Weight: 62.8 kg

DRUGS (10)
  1. OCREVUS [Suspect]
     Active Substance: OCRELIZUMAB
     Indication: PROGRESSIVE MULTIPLE SCLEROSIS
     Dosage: FOLLOWED BY EVERY 6 MONTHS
     Route: 042
     Dates: start: 20170823
  2. VITAMIN E [Concomitant]
     Active Substance: .ALPHA.-TOCOPHEROL
  3. FISH OIL [Concomitant]
     Active Substance: FISH OIL
  4. COENZYME Q10 [Concomitant]
     Active Substance: UBIDECARENONE
  5. VITAMIN C [Concomitant]
     Active Substance: ASCORBIC ACID
  6. VITAMIN B COMPLEX [Concomitant]
     Active Substance: CYANOCOBALAMIN\DEXPANTHENOL\NIACINAMIDE\PYRIDOXINE HYDROCHLORIDE\RIBOFLAVIN 5^-PHOSPHATE SODIUM\THIAMINE HYDROCHLORIDE\VITAMIN B COMPLEX
  7. BACLOFEN. [Concomitant]
     Active Substance: BACLOFEN
     Indication: MUSCLE SPASTICITY
     Route: 048
     Dates: start: 20170509
  8. AMANTADINE. [Concomitant]
     Active Substance: AMANTADINE HYDROCHLORIDE
     Indication: FATIGUE
     Route: 048
     Dates: start: 20170516
  9. AMPYRA [Concomitant]
     Active Substance: DALFAMPRIDINE
     Route: 048
     Dates: start: 20170517
  10. CARBAMAZEPINE. [Concomitant]
     Active Substance: CARBAMAZEPINE
     Indication: PAIN
     Route: 048
     Dates: start: 20171122

REACTIONS (4)
  - Discomfort [Unknown]
  - Ill-defined disorder [Unknown]
  - Grimacing [Unknown]
  - Nuclear magnetic resonance imaging brain abnormal [Unknown]

NARRATIVE: CASE EVENT DATE: 20171116
